FAERS Safety Report 6303344-1 (Version None)
Quarter: 2009Q3

REPORT INFORMATION
  Report Type: 
  Country: None (occurrence: None)
  Receive Date: 20090810
  Receipt Date: 20090713
  Transmission Date: 20100115
  Serious: No
  Sender: FDA-Public Use
  Company Number: A0796673A

PATIENT
  Age: 38 Year
  Sex: Female

DRUGS (4)
  1. TREXIMET [Suspect]
     Indication: MIGRAINE
     Dosage: 1TAB AS REQUIRED
     Route: 048
     Dates: start: 20090401
  2. MULTI-VITAMIN [Concomitant]
  3. MEDROL [Concomitant]
  4. BACTRIM [Concomitant]

REACTIONS (3)
  - HYPERAESTHESIA [None]
  - HYPOAESTHESIA [None]
  - RASH [None]
